FAERS Safety Report 5739654-6 (Version None)
Quarter: 2008Q2

REPORT INFORMATION
  Report Type: 
  Country: None (occurrence: None)
  Receive Date: 20080513
  Receipt Date: 20080428
  Transmission Date: 20081010
  Serious: Yes (Hospitalization)
  Sender: FDA-Public Use
  Company Number: SPV1-2008-00946

PATIENT
  Age: 72 Year
  Sex: Female

DRUGS (8)
  1. MIDODRINE HYDROCHLORIDE [Suspect]
     Indication: ORTHOSTATIC HYPOTENSION
     Dosage: 30 MG, ORAL
     Route: 048
  2. FLUDROCORTISONE(FLUDROCORTISONE) UNKNOWN [Suspect]
     Indication: ORTHOSTATIC HYPOTENSION
     Dosage: 50 UG,
     Dates: start: 20080401
  3. BISOPROLOL (BISOPROLOL) UNKNOWN [Concomitant]
  4. CORDARONE [Concomitant]
  5. (AMIODARONE) UNKNOWN [Concomitant]
  6. AMLOR (AMLODIPINE BESILATE) UNKNOWN [Concomitant]
  7. LASILIX /00032601/ (FUROSEMIDE) UNKNOWN [Concomitant]
  8. ATACAND /01349502/ (CANDESARTAN CILEXETIL) UNKNOWN [Concomitant]

REACTIONS (4)
  - CONDITION AGGRAVATED [None]
  - DRUG INEFFECTIVE [None]
  - ORTHOSTATIC HYPOTENSION [None]
  - PHARMACEUTICAL PRODUCT COMPLAINT [None]
